FAERS Safety Report 5014531-7 (Version None)
Quarter: 2006Q2

REPORT INFORMATION
  Report Type: 
  Country: None (occurrence: None)
  Receive Date: 20060525
  Receipt Date: 20060515
  Transmission Date: 20061013
  Serious: Yes (Other)
  Sender: FDA-Public Use
  Company Number: HQWYE043828FEB06

PATIENT
  Age: 70 Year
  Sex: Female

DRUGS (2)
  1. PANTOPRAZOLE SODIUM [Suspect]
     Indication: OESOPHAGITIS
     Dosage: SEE IMAGE
     Route: 048
     Dates: start: 20050213, end: 20060201
  2. PANTOPRAZOLE SODIUM [Suspect]
     Indication: OESOPHAGITIS
     Dosage: SEE IMAGE
     Route: 048
     Dates: start: 20060215

REACTIONS (2)
  - GASTRIC MUCOSAL HYPERTROPHY [None]
  - GASTRIC POLYPS [None]
